FAERS Safety Report 5250094-9 (Version None)
Quarter: 2007Q1

REPORT INFORMATION
  Report Type: 
  Country: None (occurrence: None)
  Receive Date: 20070228
  Receipt Date: 20060203
  Transmission Date: 20070707
  Serious: No
  Sender: FDA-Public Use
  Company Number: US-GLAXOSMITHKLINE-A0592299A

PATIENT
  Age: 57 Year
  Sex: Female

DRUGS (13)
  1. LAMICTAL [Suspect]
     Indication: BIPOLAR DISORDER
     Dosage: 100MG PER DAY
     Route: 048
     Dates: start: 20051219
  2. PARNATE [Concomitant]
  3. TRILEPTAL [Concomitant]
  4. MULTI-VITAMIN [Concomitant]
  5. ASPIRIN [Concomitant]
  6. ASCORBIC ACID [Concomitant]
  7. PROTONIX [Concomitant]
  8. CITRACAL [Concomitant]
  9. COD LIVER OIL [Concomitant]
  10. PROVIGIL [Concomitant]
  11. ICAR-C [Concomitant]
  12. TYLENOL [Concomitant]
  13. MIRALAX [Concomitant]

REACTIONS (2)
  - FATIGUE [None]
  - RASH [None]
